FAERS Safety Report 14797214 (Version 1)
Quarter: 2018Q2

REPORT INFORMATION
  Report Type: Spontaneous
  Country: FR (occurrence: FR)
  Receive Date: 20180423
  Receipt Date: 20180423
  Transmission Date: 20180711
  Serious: Yes (Other)
  Sender: FDA-Public Use
  Company Number: FR-MERCK KGAA-2046322

PATIENT
  Age: 74 Year
  Sex: Female

DRUGS (1)
  1. NOVOTHYROX [Suspect]
     Active Substance: LEVOTHYROXINE SODIUM
     Indication: POST PROCEDURAL HYPOTHYROIDISM

REACTIONS (12)
  - Coronary artery occlusion [None]
  - Impaired work ability [None]
  - Headache [None]
  - Gait disturbance [None]
  - Dizziness [None]
  - Arthralgia [None]
  - Depressed mood [None]
  - Decreased interest [None]
  - Gastrointestinal disorder [None]
  - Constipation [None]
  - Sleep disorder [None]
  - Insomnia [None]

NARRATIVE: CASE EVENT DATE: 201704
